FAERS Safety Report 12655188 (Version 1)
Quarter: 2016Q3

REPORT INFORMATION
  Report Type: Spontaneous
  Country: JP (occurrence: JP)
  Receive Date: 20160816
  Receipt Date: 20160816
  Transmission Date: 20161109
  Serious: Yes (Other)
  Sender: FDA-Public Use
  Company Number: JP-NOVOPROD-489624

PATIENT
  Age: 85 Year
  Sex: Male

DRUGS (13)
  1. SUREPOST [Suspect]
     Active Substance: REPAGLINIDE
     Indication: HYPERGLYCAEMIA
     Dosage: 0.75 MG, QD
     Route: 048
     Dates: start: 20140906
  2. SUREPOST [Suspect]
     Active Substance: REPAGLINIDE
     Dosage: 3 TAB, QD
     Route: 048
     Dates: start: 20151009
  3. DIART [Concomitant]
     Active Substance: AZOSEMIDE
     Indication: ASCITES
  4. SPIRONOLACTONE. [Concomitant]
     Active Substance: SPIRONOLACTONE
     Indication: OEDEMA PERIPHERAL
     Dosage: 25 MG, QD
     Route: 048
     Dates: start: 20140710
  5. LANIRAPID [Concomitant]
     Active Substance: METILDIGOXIN
     Indication: ASCITES
  6. EPARA [Concomitant]
     Active Substance: ICOSAPENT ETHYL
     Indication: THROMBOSIS PROPHYLAXIS
     Dosage: 1200 MG, QD
     Route: 048
     Dates: start: 20050623
  7. SPIRONOLACTONE. [Concomitant]
     Active Substance: SPIRONOLACTONE
     Indication: ASCITES
  8. SUREPOST [Suspect]
     Active Substance: REPAGLINIDE
     Indication: DIABETES MELLITUS
     Dosage: 2 DF, QD
     Route: 048
     Dates: start: 20130823
  9. AMLODIPINE [Concomitant]
     Active Substance: AMLODIPINE BESYLATE
     Indication: HYPERTENSION
     Dosage: 2.5 MG, QD
     Route: 048
     Dates: start: 20140516, end: 20160426
  10. LANIRAPID [Concomitant]
     Active Substance: METILDIGOXIN
     Indication: OEDEMA PERIPHERAL
     Dosage: 0.1 MG, QD
     Route: 048
     Dates: start: 20140516
  11. DIART [Concomitant]
     Active Substance: AZOSEMIDE
     Indication: OEDEMA PERIPHERAL
     Dosage: 30 MG, QD
     Route: 048
     Dates: start: 20140703
  12. SUREPOST [Suspect]
     Active Substance: REPAGLINIDE
     Dosage: 3 TAB, QD
     Route: 048
     Dates: start: 20141003
  13. LIVACT                             /00847901/ [Concomitant]
     Active Substance: ISOLEUCINE\LEUCINE\VALINE
     Indication: HEPATIC CIRRHOSIS
     Dosage: 12.45 G, QD
     Route: 048
     Dates: start: 20140731

REACTIONS (1)
  - Hypoglycaemic unconsciousness [Recovered/Resolved]

NARRATIVE: CASE EVENT DATE: 20160420
